FAERS Safety Report 25003677 (Version 1)
Quarter: 2025Q1

REPORT INFORMATION
  Report Type: Spontaneous
  Country: GB (occurrence: GB)
  Receive Date: 20250224
  Receipt Date: 20250224
  Transmission Date: 20250409
  Serious: Yes (Life-Threatening, Disabling, Other)
  Sender: PFIZER
  Company Number: None

PATIENT
  Age: 77 Year
  Sex: Male
  Weight: 71 kg

DRUGS (1)
  1. DALTEPARIN SODIUM [Suspect]
     Active Substance: DALTEPARIN SODIUM

REACTIONS (5)
  - Medication error [Unknown]
  - Thrombin time abnormal [Not Recovered/Not Resolved]
  - Cerebrovascular accident [Unknown]
  - Hallucination, visual [Unknown]
  - Paralysis [Unknown]

NARRATIVE: CASE EVENT DATE: 20240106
